FAERS Safety Report 9713399 (Version 1)
Quarter: 2013Q4

REPORT INFORMATION
  Report Type: Spontaneous
  Country: US (occurrence: None)
  Receive Date: 20131125
  Receipt Date: 20131125
  Transmission Date: 20140711
  Serious: Yes (Other)
  Sender: FDA-Public Use
  Company Number: None

PATIENT
  Age: 71 Year
  Sex: Female

DRUGS (6)
  1. TECFIDERA [Suspect]
     Indication: MULTIPLE SCLEROSIS
     Dosage: 1 CAPSULE
     Route: 048
     Dates: start: 20130501, end: 20131121
  2. TOPIRAMATE [Concomitant]
  3. LAMICTAL [Concomitant]
  4. BACLOFEN [Concomitant]
  5. B12 [Concomitant]
  6. STOOL SOFTNER [Concomitant]

REACTIONS (1)
  - White blood cell count abnormal [None]
